FAERS Safety Report 22707461 (Version 4)
Quarter: 2025Q1

REPORT INFORMATION
  Report Type: Spontaneous
  Country: US (occurrence: US)
  Receive Date: 20230714
  Receipt Date: 20250127
  Transmission Date: 20250409
  Serious: No
  Sender: BIOGEN
  Company Number: US-BIOGEN-2023BI01206900

PATIENT
  Sex: Female

DRUGS (6)
  1. VUMERITY [Suspect]
     Active Substance: DIROXIMEL FUMARATE
     Indication: Multiple sclerosis
     Dosage: 231MG 2 CAPSULES BY MOUTH 2 TIMES A DAY THEREAFTER
     Route: 050
     Dates: start: 20230518
  2. VUMERITY [Suspect]
     Active Substance: DIROXIMEL FUMARATE
     Dosage: 231MG 1 CAPSULE BY MOUTH 2 TIMES A DAY FOR 7 DAYS
     Route: 050
     Dates: start: 20230511, end: 20230517
  3. VITAMIN D3 [Concomitant]
     Active Substance: CHOLECALCIFEROL
     Route: 050
  4. CALCIUM CITRATE [Concomitant]
     Active Substance: CALCIUM CITRATE
     Route: 050
  5. LEVOTHYROXINE SODIUM [Concomitant]
     Active Substance: LEVOTHYROXINE SODIUM
     Route: 050
  6. VENLAFAXINE HYDROCHLORIDE [Concomitant]
     Active Substance: VENLAFAXINE HYDROCHLORIDE
     Route: 050

REACTIONS (10)
  - Product dose omission in error [Unknown]
  - Arthropod bite [Unknown]
  - Oropharyngeal pain [Unknown]
  - Headache [Unknown]
  - Sinusitis [Unknown]
  - Suspected COVID-19 [Unknown]
  - Pruritus [Unknown]
  - Diarrhoea [Unknown]
  - Flushing [Recovered/Resolved]
  - Nausea [Recovered/Resolved]

NARRATIVE: CASE EVENT DATE: 20230101
